FAERS Safety Report 8315739-5 (Version None)
Quarter: 2012Q2

REPORT INFORMATION
  Report Type: 
  Country: None (occurrence: None)
  Receive Date: 20120426
  Receipt Date: 20120418
  Transmission Date: 20120825
  Serious: Yes (Hospitalization)
  Sender: FDA-Public Use
  Company Number: US-GILEAD-2012-0048990

PATIENT
  Sex: Female

DRUGS (6)
  1. EFAVIRENZ/EMTRICITABINE/TENOFOVIR DISOPROXIL FUMARATE [Suspect]
     Indication: HIV INFECTION
     Dosage: 1 DF, QD
     Route: 048
     Dates: start: 20100811
  2. FOLIC ACID [Concomitant]
     Indication: ANAEMIA
     Dosage: UNK
     Dates: start: 20100501
  3. ZANTAC [Concomitant]
     Indication: GASTROOESOPHAGEAL REFLUX DISEASE
     Dosage: UNK
     Dates: start: 20110127
  4. VITAMIN B12                        /00056201/ [Concomitant]
     Indication: ANAEMIA
     Dosage: UNK
     Dates: start: 20100903
  5. AMBIEN [Concomitant]
     Indication: INSOMNIA
     Dosage: UNK
     Dates: start: 20110601
  6. TOPAMAX [Concomitant]
     Indication: HEADACHE
     Dosage: UNK
     Dates: start: 20110601

REACTIONS (1)
  - BRONCHITIS [None]
